FAERS Safety Report 5212710-7 (Version None)
Quarter: 2006Q4

REPORT INFORMATION
  Report Type: 
  Country: None (occurrence: None)
  Receive Date: 20061115
  Receipt Date: 20061023
  Transmission Date: 20070319
  Serious: Yes (Other)
  Sender: FDA-Public Use
  Company Number: 200615465BWH

PATIENT
  Age: 59 Year
  Sex: Male

DRUGS (9)
  1. NEXAVAR [Suspect]
     Indication: RENAL CELL CARCINOMA STAGE IV
     Dosage: 400 MG, BID, ORAL
     Route: 048
     Dates: start: 20060801
  2. LOMOTIL (DIPHENOXYLATE HYDROCHLORIDE) [Concomitant]
  3. PROTONIX [Concomitant]
  4. ROBINUL [Concomitant]
  5. LIBRAX [Concomitant]
  6. IMODIUM [Concomitant]
  7. RISPERDAL [Concomitant]
  8. WELLBUTRIN [Concomitant]
  9. LEXAPRO [Concomitant]

REACTIONS (8)
  - ANOREXIA [None]
  - DIARRHOEA [None]
  - ERYTHEMA [None]
  - FATIGUE [None]
  - PAIN [None]
  - PAIN OF SKIN [None]
  - VOMITING [None]
  - WEIGHT DECREASED [None]
